FAERS Safety Report 23538233 (Version 4)
Quarter: 2024Q3

REPORT INFORMATION
  Report Type: Spontaneous
  Country: US (occurrence: US)
  Receive Date: 20240219
  Receipt Date: 20240712
  Transmission Date: 20241016
  Serious: Yes (Life-Threatening, Hospitalization, Other)
  Sender: BRISTOL MYERS SQUIBB
  Company Number: US-BRISTOL-MYERS SQUIBB COMPANY-2024-023082

PATIENT
  Age: 83 Year
  Sex: Female

DRUGS (3)
  1. REVLIMID [Suspect]
     Active Substance: LENALIDOMIDE
     Indication: Plasma cell myeloma recurrent
     Dosage: DAILY FOR 21 DAYS/TAKE 1 CAPSULE BY MOUTH DAILY ON DAYS 1-21 EVERY 28 DAYS. WHEN SCHEDULED DOSE FALL
     Route: 048
  2. REVLIMID [Suspect]
     Active Substance: LENALIDOMIDE
     Indication: Plasma cell myeloma
     Dosage: TAKE 1 CAPSULE (2.5MG) BY MOUTH EVERY DAY ON DAYS 1- 21 AND HOLD FOR 7
     Route: 048
  3. REVLIMID [Suspect]
     Active Substance: LENALIDOMIDE
     Indication: Intraductal proliferative breast lesion

REACTIONS (8)
  - Abdominal pain upper [Not Recovered/Not Resolved]
  - Pneumothorax [Unknown]
  - Nausea [Unknown]
  - Dementia [Unknown]
  - Platelet count decreased [Unknown]
  - Constipation [Unknown]
  - Diarrhoea [Unknown]
  - Fatigue [Unknown]
